FAERS Safety Report 23254315 (Version 1)
Quarter: 2023Q4

REPORT INFORMATION
  Report Type: Spontaneous
  Country: GB (occurrence: None)
  Receive Date: 20231202
  Receipt Date: 20231202
  Transmission Date: 20240110
  Serious: Yes (Hospitalization)
  Sender: FDA-Public Use
  Company Number: GB-ROCHE-2967403

PATIENT
  Sex: Female

DRUGS (2)
  1. TOCILIZUMAB [Suspect]
     Active Substance: TOCILIZUMAB
     Indication: Giant cell arteritis
     Route: 058
     Dates: start: 20180822
  2. TOCILIZUMAB [Suspect]
     Active Substance: TOCILIZUMAB
     Dosage: EVERY 21 DAYS
     Route: 058
     Dates: start: 2020

REACTIONS (3)
  - Off label use [Unknown]
  - Malaise [Unknown]
  - Polychondritis [Unknown]
